FAERS Safety Report 6942988-0 (Version None)
Quarter: 2010Q3

REPORT INFORMATION
  Report Type: 
  Country: None (occurrence: None)
  Receive Date: 20100826
  Receipt Date: 20100818
  Transmission Date: 20110219
  Serious: Yes (Other)
  Sender: FDA-Public Use
  Company Number: DE-TEVA-243592ISR

PATIENT
  Sex: Female

DRUGS (1)
  1. COPAXONE [Suspect]
     Indication: MULTIPLE SCLEROSIS
     Route: 058
     Dates: start: 20100405, end: 20100802

REACTIONS (6)
  - COAGULOPATHY [None]
  - HYPERSENSITIVITY [None]
  - LIVER DISORDER [None]
  - PURPURA [None]
  - RASH ERYTHEMATOUS [None]
  - VASCULITIS [None]
